FAERS Safety Report 8840937 (Version 1)
Quarter: 2012Q4

REPORT INFORMATION
  Report Type: 
  Country: MX (occurrence: MX)
  Receive Date: 20121015
  Receipt Date: 20121015
  Transmission Date: 20130627
  Serious: Yes (Hospitalization)
  Sender: FDA-Public Use
  Company Number: PHHY2012MX090522

PATIENT
  Sex: Male

DRUGS (2)
  1. GALVUS MET [Suspect]
     Indication: DIABETES MELLITUS
     Dosage: 1 DF, Q12H
  2. LOPERAMIDE [Interacting]
     Dosage: UNK UKN, UNK

REACTIONS (3)
  - Drug interaction [Recovered/Resolved with Sequelae]
  - Fall [Recovered/Resolved with Sequelae]
  - Spinal column injury [Recovered/Resolved with Sequelae]
